FAERS Safety Report 4552648-1 (Version None)
Quarter: 2005Q1

REPORT INFORMATION
  Report Type: 
  Country: None (occurrence: None)
  Receive Date: 20050111
  Receipt Date: 20050111
  Transmission Date: 20050727
  Serious: Yes (Other)
  Sender: FDA-Public Use
  Company Number: None

PATIENT
  Age: 79 Year
  Sex: Female
  Weight: 61.6892 kg

DRUGS (8)
  1. LEXAPRO [Suspect]
     Indication: ANOREXIA
     Dosage: 10MG DAILY DECREASED TO 1/2 TABLET DAILY
     Dates: start: 20041103, end: 20041224
  2. LEXAPRO [Suspect]
     Indication: HEADACHE
     Dosage: 10MG DAILY DECREASED TO 1/2 TABLET DAILY
     Dates: start: 20041103, end: 20041224
  3. LEXAPRO [Suspect]
     Indication: STRESS
     Dosage: 10MG DAILY DECREASED TO 1/2 TABLET DAILY
     Dates: start: 20041103, end: 20041224
  4. ZOCOR [Concomitant]
  5. ACTONEL [Concomitant]
  6. ZYRTEC [Concomitant]
  7. LIVOSTIN OPTHALMIC [Concomitant]
  8. LEVOXYL [Concomitant]

REACTIONS (6)
  - CONSTIPATION [None]
  - DEMENTIA [None]
  - DIARRHOEA [None]
  - HAEMATOCHEZIA [None]
  - MEMORY IMPAIRMENT [None]
  - VISION BLURRED [None]
